FAERS Safety Report 9821128 (Version 1)
Quarter: 2013Q4

REPORT INFORMATION
  Report Type: Spontaneous
  Country: US (occurrence: None)
  Receive Date: 20131028
  Receipt Date: 20131028
  Transmission Date: 20140711
  Serious: Yes (Other)
  Sender: FDA-Public Use
  Company Number: 2013US001434

PATIENT
  Age: 76 Year
  Sex: Female

DRUGS (2)
  1. ICLUSIG [Suspect]
     Indication: LEUKAEMIA
     Route: 048
     Dates: start: 20130226, end: 20130401
  2. SPRYCEL (DASATINIB MONOHYDRATE) [Concomitant]

REACTIONS (4)
  - Hypertension [None]
  - Rash [None]
  - Dry skin [None]
  - Diarrhoea [None]
